FAERS Safety Report 6703536-3 (Version None)
Quarter: 2010Q2

REPORT INFORMATION
  Report Type: 
  Country: None (occurrence: None)
  Receive Date: 20100430
  Receipt Date: 20100421
  Transmission Date: 20101027
  Serious: Yes (Hospitalization, Other)
  Sender: FDA-Public Use
  Company Number: PHHY2009FR58483

PATIENT
  Sex: Female

DRUGS (19)
  1. ESIDRIX [Suspect]
     Indication: HYPERTENSION
     Dosage: 25 MG, BID
     Route: 048
     Dates: start: 20090801, end: 20091107
  2. AUGMENTIN '125' [Suspect]
     Indication: INFECTION PROPHYLAXIS
     Dosage: 1000 MG, TID
     Route: 048
     Dates: start: 20090801, end: 20091107
  3. CORTANCYL [Suspect]
     Indication: POLYARTERITIS NODOSA
     Dosage: 50 MG DAILY
     Route: 048
     Dates: start: 20090625, end: 20091107
  4. SINEMET [Suspect]
     Indication: PARKINSON'S DISEASE
     Dosage: 2 DF, TID
     Dates: end: 20091107
  5. XANAX [Suspect]
     Dosage: 0.0625 MG DAILY
     Route: 048
     Dates: end: 20091107
  6. TEMERIT [Suspect]
     Dosage: FOUR-SCORED TABLET, 1 DAILY DOSE
     Route: 048
     Dates: end: 20091107
  7. MOPRAL [Suspect]
     Dosage: 40 MG DAILY
     Route: 048
     Dates: end: 20090801
  8. AMLOR [Suspect]
     Dosage: 5 MG DAILY
     Route: 048
     Dates: end: 20091107
  9. CAPTOPRIL [Suspect]
     Dosage: 50 MG, BID
     Route: 048
     Dates: start: 20090801, end: 20091107
  10. NORSET [Suspect]
     Dosage: 15 MG DAILY
     Route: 048
     Dates: end: 20091107
  11. MOTILIUM [Concomitant]
  12. DOLIPRANE [Concomitant]
  13. TARDYFERON B(9) [Concomitant]
  14. ZOLPIDEM [Concomitant]
  15. DIFFU K [Concomitant]
  16. CAPTOPRIL AND HYDROCHLOROTHIAZIDE [Concomitant]
     Dosage: UNK
     Route: 065
     Dates: end: 20090801
  17. CACIT D3 [Concomitant]
  18. BONIVA [Concomitant]
  19. FORLAX [Concomitant]

REACTIONS (21)
  - ABDOMINAL PAIN UPPER [None]
  - BLOOD CHLORIDE DECREASED [None]
  - BLOOD POTASSIUM DECREASED [None]
  - BLOOD SODIUM DECREASED [None]
  - CHOLESTASIS [None]
  - CHOLESTATIC LIVER INJURY [None]
  - CONFUSIONAL STATE [None]
  - CUSHINGOID [None]
  - DECREASED APPETITE [None]
  - DISORIENTATION [None]
  - FAECES DISCOLOURED [None]
  - FATIGUE [None]
  - HEPATIC HAEMATOMA [None]
  - HEPATOCELLULAR INJURY [None]
  - HEPATOMEGALY [None]
  - JAUNDICE [None]
  - MALAISE [None]
  - OEDEMA PERIPHERAL [None]
  - PARKINSON'S DISEASE [None]
  - PSYCHOMOTOR RETARDATION [None]
  - URINE COLOUR ABNORMAL [None]
